FAERS Safety Report 7159543-2 (Version None)
Quarter: 2010Q4

REPORT INFORMATION
  Report Type: 
  Country: None (occurrence: None)
  Receive Date: 20101214
  Receipt Date: 20100917
  Transmission Date: 20110411
  Serious: No
  Sender: FDA-Public Use
  Company Number: US-ASTRAZENECA-2010SE44043

PATIENT
  Age: 70 Year
  Sex: Female
  Weight: 68 kg

DRUGS (10)
  1. CRESTOR [Suspect]
     Indication: BLOOD CHOLESTEROL INCREASED
     Route: 048
     Dates: end: 20100901
  2. LAMOTRIGINE [Concomitant]
  3. OXYCONTIN [Concomitant]
  4. ESTRADIOL [Concomitant]
  5. OMEPRAZOLE [Concomitant]
  6. REQUIP [Concomitant]
  7. CYMBALTA [Concomitant]
  8. AMBIEN [Concomitant]
  9. LUMIGAN EYE GTTS [Concomitant]
  10. PROVIGIL [Concomitant]

REACTIONS (4)
  - FATIGUE [None]
  - MUSCLE DISORDER [None]
  - MUSCULAR WEAKNESS [None]
  - WEIGHT INCREASED [None]
